FAERS Safety Report 4348982-0 (Version None)
Quarter: 2004Q2

REPORT INFORMATION
  Report Type: 
  Country: None (occurrence: None)
  Receive Date: 20040427
  Receipt Date: 20040427
  Transmission Date: 20050107
  Serious: Yes (Disabling)
  Sender: FDA-Public Use
  Company Number: None

PATIENT
  Sex: Male
  Weight: 82.1011 kg

DRUGS (5)
  1. CRESTOR [Suspect]
     Indication: DIABETES MELLITUS
     Dosage: 10 MG PO QD
     Route: 048
     Dates: start: 20040301, end: 20040323
  2. CRESTOR [Suspect]
     Indication: HYPERLIPIDAEMIA
     Dosage: 10 MG PO QD
     Route: 048
     Dates: start: 20040301, end: 20040323
  3. METAGLIP 5/500 [Concomitant]
  4. ASPIRIN [Concomitant]
  5. MONOPRIL [Concomitant]

REACTIONS (2)
  - HEPATITIS ACUTE [None]
  - IMPAIRED WORK ABILITY [None]
